FAERS Safety Report 25089635 (Version 2)
Quarter: 2025Q1

REPORT INFORMATION
  Report Type: Report from Study
  Country: US (occurrence: US)
  Receive Date: 20250318
  Receipt Date: 20250319
  Transmission Date: 20250409
  Serious: Yes (Hospitalization)
  Sender: PFIZER
  Company Number: US-PFIZER INC-202500056852

PATIENT
  Age: 61 Year
  Sex: Male

DRUGS (1)
  1. LORBRENA [Suspect]
     Active Substance: LORLATINIB
     Dosage: 3 TABLETS (75 MG) DAILY
     Dates: start: 2020

REACTIONS (2)
  - Gastrointestinal disorder [Unknown]
  - Blood cholesterol increased [Unknown]
